FAERS Safety Report 9318771 (Version 1)
Quarter: 2013Q2

REPORT INFORMATION
  Report Type: Spontaneous
  Country: CH (occurrence: CH)
  Receive Date: 20130530
  Receipt Date: 20130530
  Transmission Date: 20140414
  Serious: Yes (Death, Other)
  Sender: FDA-Public Use
  Company Number: CH-PFIZER INC-2013161546

PATIENT
  Age: 74 Year
  Sex: Male

DRUGS (3)
  1. SUTENT [Suspect]
     Indication: CLEAR CELL RENAL CELL CARCINOMA
     Dosage: UNK
     Dates: start: 200903, end: 2011
  2. AFINITOR [Suspect]
     Indication: CLEAR CELL RENAL CELL CARCINOMA
     Dosage: UNK
     Dates: start: 201104
  3. ZOMETA [Concomitant]

REACTIONS (3)
  - Disease progression [Fatal]
  - Clear cell renal cell carcinoma [Fatal]
  - Inferior vena cava syndrome [Unknown]
